FAERS Safety Report 7874880-1 (Version None)
Quarter: 2011Q3

REPORT INFORMATION
  Report Type: 
  Country: None (occurrence: None)
  Receive Date: 20110928
  Receipt Date: 20110712
  Transmission Date: 20111222
  Serious: Yes (Other)
  Sender: FDA-Public Use
  Company Number: WWISSUE-642

PATIENT

DRUGS (1)
  1. GABAPENTIN [Suspect]
     Dates: start: 20110601, end: 20110712

REACTIONS (1)
  - DRUG INEFFECTIVE [None]
